FAERS Safety Report 14191929 (Version 1)
Quarter: 2017Q4

REPORT INFORMATION
  Report Type: Spontaneous
  Country: US (occurrence: US)
  Receive Date: 20171115
  Receipt Date: 20171115
  Transmission Date: 20180321
  Serious: No
  Sender: FDA-Public Use
  Company Number: US-BAYER-2017-220145

PATIENT
  Age: 73 Year
  Sex: Male
  Weight: 75 kg

DRUGS (3)
  1. MIRALAX [Suspect]
     Active Substance: POLYETHYLENE GLYCOL 3350
     Indication: COLONOSCOPY
     Route: 048
     Dates: start: 20171113, end: 20171114
  2. DULCOLAX (BISACODYL) [Concomitant]
     Active Substance: BISACODYL
  3. ALFUZOSIN [Concomitant]
     Active Substance: ALFUZOSIN

REACTIONS (3)
  - Inappropriate prescribing [Unknown]
  - Product use in unapproved indication [None]
  - Wrong technique in product usage process [None]

NARRATIVE: CASE EVENT DATE: 20171113
